FAERS Safety Report 7626040-7 (Version None)
Quarter: 2011Q3

REPORT INFORMATION
  Report Type: 
  Country: None (occurrence: None)
  Receive Date: 20110721
  Receipt Date: 20110707
  Transmission Date: 20111222
  Serious: Yes (Death, Other)
  Sender: FDA-Public Use
  Company Number: US-PFIZER INC-2010001556

PATIENT
  Age: 54 Year
  Sex: Male

DRUGS (4)
  1. INSULIN [Suspect]
     Dosage: UNK
     Route: 048
     Dates: end: 20080101
  2. GLYBURIDE [Suspect]
     Dosage: UNK
     Route: 048
     Dates: end: 20080101
  3. ROSIGLITAZONE [Suspect]
     Dosage: UNK
     Route: 048
     Dates: end: 20080101
  4. METFORMIN HYDROCHLORIDE [Suspect]
     Dosage: UNK
     Route: 048
     Dates: end: 20080101

REACTIONS (1)
  - COMPLETED SUICIDE [None]
